FAERS Safety Report 6137659-7 (Version None)
Quarter: 2009Q1

REPORT INFORMATION
  Report Type: 
  Country: None (occurrence: None)
  Receive Date: 20090331
  Receipt Date: 20090320
  Transmission Date: 20090719
  Serious: Yes (Life-Threatening, Hospitalization)
  Sender: FDA-Public Use
  Company Number: FR-ALLERGAN-0904166US

PATIENT
  Sex: Male

DRUGS (13)
  1. TROSPIUM CHLORIDE [Suspect]
     Indication: DYSURIA
     Dosage: 20 MG, UNK
     Route: 048
     Dates: start: 20090217, end: 20090219
  2. MESTINON [Suspect]
     Indication: MUSCULAR WEAKNESS
     Dosage: 4 TO 5 TABLETS, QD
     Route: 048
  3. CLAMOXYL [Concomitant]
     Dosage: 3 G, QD
  4. RILMENIDINE [Concomitant]
  5. LANZOR [Concomitant]
  6. ATENOLOL [Concomitant]
  7. AMLOR [Concomitant]
  8. COAPROVEL [Concomitant]
  9. PRAVASTATIN [Concomitant]
  10. KARDEGIC [Concomitant]
  11. TRIMETAZIDINE [Concomitant]
  12. TAMSULOSINE [Concomitant]
  13. LAMALINE [Concomitant]

REACTIONS (1)
  - MYASTHENIA GRAVIS CRISIS [None]
